FAERS Safety Report 9115386 (Version 1)
Quarter: 2013Q3

REPORT INFORMATION
  Report Type: Spontaneous
  Country: US (occurrence: None)
  Receive Date: 20130221
  Receipt Date: 20130221
  Transmission Date: 20140515
  Serious: Yes (Hospitalization)
  Sender: FDA-Public Use
  Company Number: None

PATIENT
  Age: 76 Year
  Sex: 0
  Weight: 77.9 kg

DRUGS (1)
  1. ARSENIC TRIOXIDE [Suspect]
     Indication: SMALL CELL LUNG CANCER
     Dosage: BI WEEKLY
     Route: 042
     Dates: start: 20130116, end: 20130131

REACTIONS (1)
  - Dyspnoea [None]
